FAERS Safety Report 16228865 (Version 1)
Quarter: 2019Q2

REPORT INFORMATION
  Report Type: Spontaneous
  Country: US (occurrence: US)
  Receive Date: 20190319
  Receipt Date: 20190319
  Transmission Date: 20190711
  Serious: No
  Sender: FDA-Public Use
  Company Number: None

PATIENT
  Age: 61 Year
  Sex: Female

DRUGS (2)
  1. CAPECITABINE TAB 150 MG [Suspect]
     Active Substance: CAPECITABINE
  2. AVASTIN [Suspect]
     Active Substance: BEVACIZUMAB

REACTIONS (3)
  - Encephalitis [None]
  - Cerebrovascular accident [None]
  - Cardiac failure [None]

NARRATIVE: CASE EVENT DATE: 20190319
